FAERS Safety Report 23321929 (Version 1)
Quarter: 2023Q4

REPORT INFORMATION
  Report Type: Spontaneous
  Country: US (occurrence: US)
  Receive Date: 20231220
  Receipt Date: 20231220
  Transmission Date: 20240110
  Serious: Yes (Other)
  Sender: FDA-Public Use
  Company Number: US-PFIZER INC-PV202300063821

PATIENT
  Age: 70 Year
  Sex: Female
  Weight: 82.086 kg

DRUGS (2)
  1. IBRANCE [Suspect]
     Active Substance: PALBOCICLIB
     Indication: Breast cancer
     Dosage: 125 MG, 1 TABLET DAILY ON DAYS 1-21 THEN OFF 7 DAYS OF 28 DAY CYCLE
     Route: 048
     Dates: start: 20230413
  2. ARIMIDEX [Suspect]
     Active Substance: ANASTROZOLE
     Dosage: UNK
     Dates: start: 20230413

REACTIONS (3)
  - Pneumonia [Recovered/Resolved]
  - Neutrophil count decreased [Unknown]
  - Red blood cell count decreased [Unknown]

NARRATIVE: CASE EVENT DATE: 20231109
